FAERS Safety Report 14507792 (Version 1)
Quarter: 2018Q1

REPORT INFORMATION
  Report Type: Report from Study
  Country: BR (occurrence: BR)
  Receive Date: 20180208
  Receipt Date: 20180208
  Transmission Date: 20180509
  Serious: Yes (Hospitalization)
  Sender: FDA-Public Use
  Company Number: BR-EMD SERONO-E2B_90020008

PATIENT
  Age: 45 Year
  Sex: Female

DRUGS (10)
  1. RISPERIDONE. [Concomitant]
     Active Substance: RISPERIDONE
     Indication: SLEEP DISORDER
  2. CINNARIZINE [Concomitant]
     Active Substance: CINNARIZINE
     Indication: SLEEP DISORDER
  3. REBIF [Suspect]
     Active Substance: INTERFERON BETA-1A
     Indication: MULTIPLE SCLEROSIS
     Route: 058
     Dates: start: 20160608
  4. CODEINE [Concomitant]
     Active Substance: CODEINE
     Indication: PAIN
  5. NEURAL                             /01047101/ [Concomitant]
     Indication: SLEEP DISORDER
  6. BIPERIDEN [Concomitant]
     Active Substance: BIPERIDEN
     Indication: SLEEP DISORDER
  7. CLONAZEPAM. [Concomitant]
     Active Substance: CLONAZEPAM
     Indication: SLEEP DISORDER
  8. CHLORPROMAZINE. [Concomitant]
     Active Substance: CHLORPROMAZINE
     Indication: SLEEP DISORDER
  9. CINETOL                            /00079502/ [Concomitant]
     Indication: SLEEP DISORDER
  10. CITALOPRAM [Concomitant]
     Active Substance: CITALOPRAM HYDROBROMIDE
     Indication: SLEEP DISORDER

REACTIONS (4)
  - Diarrhoea [Recovered/Resolved]
  - Pyrexia [Recovered/Resolved]
  - Vomiting [Recovered/Resolved]
  - Nausea [Recovered/Resolved]

NARRATIVE: CASE EVENT DATE: 20171222
